FAERS Safety Report 11706293 (Version 1)
Quarter: 2015Q4

REPORT INFORMATION
  Report Type: Report from Study
  Country: BE (occurrence: BE)
  Receive Date: 20151106
  Receipt Date: 20151106
  Transmission Date: 20160304
  Serious: Yes (Other)
  Sender: FDA-Public Use
  Company Number: PHHY2015BE144014

PATIENT
  Age: 60 Year
  Sex: Male

DRUGS (1)
  1. SOM230 [Suspect]
     Active Substance: PASIREOTIDE
     Indication: PITUITARY-DEPENDENT CUSHING^S SYNDROME
     Dosage: 0.6 MG, UNK
     Route: 058
     Dates: start: 20151030, end: 20151030

REACTIONS (2)
  - Electrocardiogram repolarisation abnormality [Recovering/Resolving]
  - Electrocardiogram ST-T segment abnormal [Recovering/Resolving]

NARRATIVE: CASE EVENT DATE: 20151030
